FAERS Safety Report 14670235 (Version 2)
Quarter: 2018Q2

REPORT INFORMATION
  Report Type: Spontaneous
  Country: AT (occurrence: AT)
  Receive Date: 20180322
  Receipt Date: 20180409
  Transmission Date: 20180711
  Serious: Yes (Other)
  Sender: FDA-Public Use
  Company Number: AT-CELLTRION INC.-2018AT018634

PATIENT

DRUGS (6)
  1. SAROTEN [Concomitant]
     Active Substance: AMITRIPTYLINE
  2. REMSIMA [Suspect]
     Active Substance: INFLIXIMAB
     Indication: CROHN^S DISEASE
     Dosage: 300 MG
     Route: 042
  3. HALCION [Concomitant]
     Active Substance: TRIAZOLAM
  4. EUTHYROX [Concomitant]
     Active Substance: LEVOTHYROXINE SODIUM
  5. PANTOLOC                           /01263201/ [Concomitant]
     Active Substance: PANTOPRAZOLE SODIUM
  6. NOVALGIN                           /00169801/ [Concomitant]
     Active Substance: ACETAMINOPHEN\CAFFEINE\PROPYPHENAZONE

REACTIONS (1)
  - Disease progression [Recovering/Resolving]
